FAERS Safety Report 17597236 (Version 1)
Quarter: 2020Q1

REPORT INFORMATION
  Report Type: Report from Study
  Country: CO (occurrence: CO)
  Receive Date: 20200330
  Receipt Date: 20200330
  Transmission Date: 20200409
  Serious: Yes (Other)
  Sender: FDA-Public Use
  Company Number: CO-ROCHE-2474888

PATIENT
  Sex: Female

DRUGS (1)
  1. TRASTUZUMAB. [Suspect]
     Active Substance: TRASTUZUMAB
     Indication: PRODUCT USED FOR UNKNOWN INDICATION
     Route: 065

REACTIONS (9)
  - Gastrointestinal disorder [Unknown]
  - Syncope [Unknown]
  - Asthenia [Unknown]
  - Muscular weakness [Unknown]
  - Angina pectoris [Unknown]
  - Chest pain [Unknown]
  - Discomfort [Unknown]
  - Malaise [Unknown]
  - Pain in extremity [Unknown]
